FAERS Safety Report 4310420-1 (Version None)
Quarter: 2004Q1

REPORT INFORMATION
  Report Type: 
  Country: None (occurrence: None)
  Receive Date: 20040303
  Receipt Date: 20040209
  Transmission Date: 20041129
  Serious: Yes (Hospitalization)
  Sender: FDA-Public Use
  Company Number: PHNU2004DE00841

PATIENT
  Age: 66 Year
  Sex: Male
  Weight: 72 kg

DRUGS (6)
  1. SANDIMMUNE [Suspect]
     Indication: NEPHROTIC SYNDROME
     Dosage: 200 MG DAILY
     Route: 048
     Dates: start: 20040126, end: 20040202
  2. ALLOPURINOL [Suspect]
     Indication: GLOMERULONEPHRITIS MEMBRANOUS
     Dosage: 150 MG DAILY
     Route: 048
  3. VESDIL 2.5 PLUS [Suspect]
     Indication: GLOMERULONEPHRITIS MEMBRANOUS
     Dosage: 10 MG DAILY
     Route: 048
  4. ATACAND [Suspect]
     Indication: GLOMERULONEPHRITIS MEMBRANOUS
     Dosage: 16 MG DAILY
     Route: 048
  5. NEBILET [Suspect]
     Indication: GLOMERULONEPHRITIS MEMBRANOUS
     Dosage: 2.5 MG DAILY
     Route: 048
  6. PRAVASIN [Suspect]
     Indication: GLOMERULONEPHRITIS MEMBRANOUS
     Dosage: 10 MG DAILY
     Route: 048

REACTIONS (12)
  - BLOOD ALBUMIN DECREASED [None]
  - BLOOD CREATININE INCREASED [None]
  - CONFUSIONAL STATE [None]
  - DRUG LEVEL DECREASED [None]
  - FLUID RETENTION [None]
  - HAEMOGLOBIN DECREASED [None]
  - HYPERTENSIVE CRISIS [None]
  - LEUKOENCEPHALOPATHY [None]
  - OEDEMA PERIPHERAL [None]
  - PERSONALITY CHANGE [None]
  - PROTEIN TOTAL DECREASED [None]
  - PROTEINURIA [None]
